FAERS Safety Report 20653666 (Version 1)
Quarter: 2022Q1

REPORT INFORMATION
  Report Type: Spontaneous
  Country: US (occurrence: US)
  Receive Date: 20220330
  Receipt Date: 20220330
  Transmission Date: 20220423
  Serious: Yes (Other)
  Sender: FDA-Public Use
  Company Number: US-AMGEN-USASP2022050303

PATIENT
  Age: 75 Year
  Sex: Female

DRUGS (1)
  1. PROLIA [Suspect]
     Active Substance: DENOSUMAB
     Indication: Osteoporosis
     Dosage: UNK
     Route: 065
     Dates: start: 20210909

REACTIONS (4)
  - Spinal fracture [Unknown]
  - Hernia repair [Recovering/Resolving]
  - Groin pain [Unknown]
  - Muscle strain [Unknown]

NARRATIVE: CASE EVENT DATE: 20220222
